FAERS Safety Report 25525535 (Version 3)
Quarter: 2025Q3

REPORT INFORMATION
  Report Type: Spontaneous
  Country: EU (occurrence: EU)
  Receive Date: 20250707
  Receipt Date: 20250802
  Transmission Date: 20251021
  Serious: No
  Sender: ALEXION PHARMACEUTICALS
  Company Number: EU-AstraZeneca-CH-00903612A

PATIENT
  Age: 42 Year

DRUGS (2)
  1. KOSELUGO [Suspect]
     Active Substance: SELUMETINIB
     Indication: Neurofibromatosis
     Route: 065
  2. KOSELUGO [Suspect]
     Active Substance: SELUMETINIB
     Indication: Neurofibrosarcoma

REACTIONS (1)
  - Off label use [Unknown]
